FAERS Safety Report 24294242 (Version 1)
Quarter: 2024Q3

REPORT INFORMATION
  Report Type: Spontaneous
  Country: US (occurrence: US)
  Receive Date: 20240906
  Receipt Date: 20240906
  Transmission Date: 20241017
  Serious: No
  Sender: DOMPE FARMACEUTICI
  Company Number: US-FARMAPROD-202406-2185

PATIENT
  Age: 69 Year
  Sex: Female

DRUGS (17)
  1. OXERVATE [Suspect]
     Active Substance: CENEGERMIN-BKBJ
     Indication: Neurotrophic keratopathy
     Route: 047
     Dates: start: 20240531
  2. MOUNJARO [Concomitant]
     Active Substance: TIRZEPATIDE
     Dosage: 15MG/0.5ML PEN INJECTOR
  3. POTASSIUM CHLORIDE [Concomitant]
     Active Substance: POTASSIUM CHLORIDE
  4. ARIPIPRAZOLE [Concomitant]
     Active Substance: ARIPIPRAZOLE
  5. ESCITALOPRAM OXALATE [Concomitant]
     Active Substance: ESCITALOPRAM OXALATE
  6. RANOLAZINE [Concomitant]
     Active Substance: RANOLAZINE
     Dosage: 12 HOURS
  7. BUMETANIDE [Concomitant]
     Active Substance: BUMETANIDE
     Dosage: 12 HOURS
  8. LANSOPRAZOLE [Concomitant]
     Active Substance: LANSOPRAZOLE
     Dosage: 12 HOURS
  9. LEVOTHYROXINE SODIUM [Concomitant]
     Active Substance: LEVOTHYROXINE SODIUM
     Dosage: 12 HOURS
  10. LOSARTAN POTASSIUM [Concomitant]
     Active Substance: LOSARTAN POTASSIUM
     Dosage: 12 HOURS
  11. DIAZEPAM [Concomitant]
     Active Substance: DIAZEPAM
     Dosage: 12 HOURS
  12. VITAMIN D2 [Concomitant]
     Active Substance: ERGOCALCIFEROL
     Dosage: 12 HOURS
  13. TYLENOL [Concomitant]
     Active Substance: ACETAMINOPHEN
     Dosage: 12 HOURS
  14. IVIZIA [Concomitant]
     Active Substance: POVIDONE
     Dosage: 12 HOURS
  15. CYCLOSPORINE [Concomitant]
     Active Substance: CYCLOSPORINE
     Dosage: 12 HOURS
  16. VITAMIN B12 [Concomitant]
     Active Substance: CYANOCOBALAMIN
     Dosage: 12 HOURS
  17. ATORVASTATIN CALCIUM [Concomitant]
     Active Substance: ATORVASTATIN CALCIUM
     Dosage: 12 HOURS

REACTIONS (3)
  - Intentional product misuse [Unknown]
  - Eye pain [Unknown]
  - Periorbital pain [Unknown]

NARRATIVE: CASE EVENT DATE: 20240601
